FAERS Safety Report 7486381-3 (Version None)
Quarter: 2011Q2

REPORT INFORMATION
  Report Type: 
  Country: None (occurrence: None)
  Receive Date: 20110517
  Receipt Date: 20110401
  Transmission Date: 20111010
  Serious: No
  Sender: FDA-Public Use
  Company Number: US-NOVEN-11US002168

PATIENT
  Sex: Male

DRUGS (3)
  1. DAYTRANA [Suspect]
     Dosage: 10 MG, UNK
     Route: 062
     Dates: start: 20110101
  2. DAYTRANA [Suspect]
     Indication: ATTENTION DEFICIT/HYPERACTIVITY DISORDER
     Dosage: 20 MG, FOR 9 HRS, QD
     Route: 062
     Dates: start: 20110301
  3. DAYTRANA [Suspect]
     Dosage: 20 MG, UNK
     Route: 062
     Dates: start: 20110301

REACTIONS (4)
  - DRUG INEFFECTIVE [None]
  - DISTURBANCE IN SOCIAL BEHAVIOUR [None]
  - DRUG ADMINISTRATION ERROR [None]
  - PRODUCT QUALITY ISSUE [None]
